FAERS Safety Report 10890513 (Version 2)
Quarter: 2015Q2

REPORT INFORMATION
  Report Type: Spontaneous
  Country: US (occurrence: US)
  Receive Date: 20150305
  Receipt Date: 20150511
  Transmission Date: 20150821
  Serious: No
  Sender: FDA-Public Use
  Company Number: US-ASTRAZENECA-2015SE20507

PATIENT
  Age: 67 Year
  Sex: Female
  Weight: 103 kg

DRUGS (8)
  1. ATIVAN [Concomitant]
     Active Substance: LORAZEPAM
     Indication: ANXIETY
     Dates: start: 2010
  2. HUMALOG [Concomitant]
     Active Substance: INSULIN LISPRO
     Indication: DIABETES MELLITUS
     Dosage: 15 UNITS IN THE MORNING, THEN IF GREATER THAN 200 ADD FIVE 30 UNITS BEFORE DINNER
     Dates: start: 2010
  3. ALEVE [Concomitant]
     Active Substance: NAPROXEN SODIUM
     Indication: JOINT DISLOCATION
     Dates: start: 2014
  4. MIRABEGRON [Concomitant]
     Active Substance: MIRABEGRON
     Indication: POLLAKIURIA
     Dates: end: 20150325
  5. AMBIEN [Concomitant]
     Active Substance: ZOLPIDEM TARTRATE
     Indication: INSOMNIA
     Dosage: 15-20 MG
     Dates: start: 2009
  6. NEXIUM 24HR [Suspect]
     Active Substance: ESOMEPRAZOLE MAGNESIUM
     Indication: GASTROOESOPHAGEAL REFLUX DISEASE
     Route: 048
     Dates: start: 2015, end: 2015
  7. NEXIUM 24HR [Suspect]
     Active Substance: ESOMEPRAZOLE MAGNESIUM
     Indication: GASTROOESOPHAGEAL REFLUX DISEASE
     Route: 048
     Dates: start: 2015, end: 2015
  8. HUMULIN N [Concomitant]
     Active Substance: INSULIN HUMAN
     Dosage: 20 UNITS IN THE MORNING, 70 UNITS AT BEDTIME
     Dates: start: 2010

REACTIONS (7)
  - Epigastric discomfort [Recovered/Resolved]
  - Intentional product misuse [Recovered/Resolved]
  - Dyspepsia [Unknown]
  - Abdominal discomfort [Recovered/Resolved]
  - Diarrhoea [Recovered/Resolved]
  - Drug ineffective for unapproved indication [Recovered/Resolved]
  - Malaise [Unknown]

NARRATIVE: CASE EVENT DATE: 2015
